FAERS Safety Report 12803408 (Version 1)
Quarter: 2016Q4

REPORT INFORMATION
  Report Type: Spontaneous
  Country: US (occurrence: US)
  Receive Date: 20161003
  Receipt Date: 20161003
  Transmission Date: 20170207
  Serious: No
  Sender: FDA-Public Use
  Company Number: US-BAYER-2016-181926

PATIENT
  Age: 3 Year
  Sex: Female

DRUGS (2)
  1. CHILDREN CLARITIN ALLERGY [Suspect]
     Active Substance: LORATADINE
     Indication: HYPERSENSITIVITY
     Dosage: 1 TEASPOON, QD
  2. CHILDREN CLARITIN ALLERGY [Suspect]
     Active Substance: LORATADINE
     Indication: NASOPHARYNGITIS
     Dosage: 2 TEASPOON GIVEN IN 24 HOURS
     Dates: start: 20160916, end: 20160916

REACTIONS (2)
  - Expired product administered [None]
  - Extra dose administered [Recovered/Resolved]

NARRATIVE: CASE EVENT DATE: 2016
